FAERS Safety Report 8095312-7 (Version None)
Quarter: 2012Q1

REPORT INFORMATION
  Report Type: 
  Country: None (occurrence: None)
  Receive Date: 20120129
  Receipt Date: 20111219
  Transmission Date: 20120608
  Serious: No
  Sender: FDA-Public Use
  Company Number: US-ABBOTT-11P-163-0884888-00

PATIENT
  Sex: Female
  Weight: 46.308 kg

DRUGS (5)
  1. OXYCODONE HCL [Concomitant]
     Indication: PAIN
  2. LEFLUDIMIDE [Concomitant]
     Indication: RHEUMATOID ARTHRITIS
     Dates: start: 20111201
  3. VITAMIN TAB [Concomitant]
     Indication: VITAMIN SUPPLEMENTATION
  4. LAMICTAL [Concomitant]
     Indication: CONVULSION
  5. HUMIRA [Suspect]
     Indication: RHEUMATOID ARTHRITIS

REACTIONS (6)
  - PYREXIA [None]
  - MALAISE [None]
  - ARTHRALGIA [None]
  - RHEUMATOID ARTHRITIS [None]
  - WEIGHT DECREASED [None]
  - PAIN IN EXTREMITY [None]
